FAERS Safety Report 11512889 (Version 1)
Quarter: 2015Q3

REPORT INFORMATION
  Report Type: Spontaneous
  Country: US (occurrence: US)
  Receive Date: 20150903
  Receipt Date: 20150903
  Transmission Date: 20151125
  Serious: No
  Sender: FDA-Public Use
  Company Number: US-ELI_LILLY_AND_COMPANY-US201004006030

PATIENT
  Sex: Female

DRUGS (3)
  1. METFORMIN [Concomitant]
     Active Substance: METFORMIN HYDROCHLORIDE
     Dosage: UNK, 2/D
  2. HUMALOG [Suspect]
     Active Substance: INSULIN LISPRO
     Dosage: 38 U, UNKNOWN
     Dates: start: 200912
  3. HUMALOG [Suspect]
     Active Substance: INSULIN LISPRO
     Dosage: 38 U, UNKNOWN

REACTIONS (1)
  - Drug dispensing error [Unknown]
